FAERS Safety Report 9169909 (Version 1)
Quarter: 2013Q1

REPORT INFORMATION
  Report Type: Spontaneous
  Country: US (occurrence: None)
  Receive Date: 20130307
  Receipt Date: 20130307
  Transmission Date: 20140127
  Serious: Yes (Other)
  Sender: FDA-Public Use
  Company Number: VAL_01431_2013

PATIENT
  Age: 85 Year
  Sex: Female

DRUGS (9)
  1. LOPRESSOR [Suspect]
     Indication: PRODUCT USED FOR UNKNOWN INDICATION
  2. LOPRESSOR [Suspect]
  3. LOPRESSOR [Suspect]
  4. LOPRESSOR [Suspect]
  5. LOPRESSOR [Suspect]
  6. MAALOX TOTAL RELIEF [Suspect]
     Indication: PRODUCT USED FOR UNKNOWN INDICATION
  7. IMODIUM [Suspect]
     Indication: PRODUCT USED FOR UNKNOWN INDICATION
  8. BABY ASPIRIN [Suspect]
     Indication: PRODUCT USED FOR UNKNOWN INDICATION
  9. CARAFATE [Suspect]
     Indication: PRODUCT USED FOR UNKNOWN INDICATION

REACTIONS (4)
  - Flatulence [None]
  - Abdominal pain [None]
  - Constipation [None]
  - Haematochezia [None]
